FAERS Safety Report 9616883 (Version 5)
Quarter: 2014Q4

REPORT INFORMATION
  Report Type: Report from Study
  Country: CA (occurrence: CA)
  Receive Date: 20131011
  Receipt Date: 20141125
  Transmission Date: 20150529
  Serious: Yes (Other)
  Sender: FDA-Public Use
  Company Number: PHHY2013CA056946

PATIENT
  Age: 57 Year
  Sex: Female

DRUGS (5)
  1. GLEEVEC [Suspect]
     Active Substance: IMATINIB MESYLATE
     Dosage: 400 MG, QD
     Route: 048
     Dates: start: 20130620
  2. ARIMIDEX [Concomitant]
     Active Substance: ANASTROZOLE
     Indication: PRODUCT USED FOR UNKNOWN INDICATION
     Route: 065
  3. GLEEVEC [Suspect]
     Active Substance: IMATINIB MESYLATE
     Dosage: 400 MG, QD
     Route: 048
  4. GLEEVEC [Suspect]
     Active Substance: IMATINIB MESYLATE
     Indication: GASTROINTESTINAL STROMAL TUMOUR
     Dosage: 400 MG, QD
     Route: 048
     Dates: start: 20130523
  5. STOMACH [Concomitant]
     Dosage: UNK UKN, UNK

REACTIONS (27)
  - Haematochezia [Unknown]
  - Joint swelling [Unknown]
  - Hearing impaired [Unknown]
  - Urticaria [Unknown]
  - Periorbital oedema [Not Recovered/Not Resolved]
  - Pyrexia [Unknown]
  - Oedema peripheral [Not Recovered/Not Resolved]
  - Sinus disorder [Unknown]
  - Cough [Unknown]
  - Diarrhoea [Unknown]
  - Skin exfoliation [Recovering/Resolving]
  - Increased bronchial secretion [Unknown]
  - Eye pain [Unknown]
  - Dysphonia [Unknown]
  - Eye swelling [Recovering/Resolving]
  - Chills [Unknown]
  - Constipation [Unknown]
  - Bronchitis [Unknown]
  - Rhinorrhoea [Unknown]
  - Rash generalised [Unknown]
  - Dry skin [Unknown]
  - Pain [Unknown]
  - Swelling [Unknown]
  - Headache [Unknown]
  - Alopecia [Unknown]
  - Photosensitivity reaction [Unknown]
  - Pruritus [Recovering/Resolving]

NARRATIVE: CASE EVENT DATE: 201306
